FAERS Safety Report 17907287 (Version 1)
Quarter: 2020Q2

REPORT INFORMATION
  Report Type: Spontaneous
  Country: CA (occurrence: CA)
  Receive Date: 20200617
  Receipt Date: 20200617
  Transmission Date: 20200714
  Serious: Yes (Life-Threatening)
  Sender: FDA-Public Use
  Company Number: CA-ADIENNEP-2020AD000340

PATIENT
  Age: 4 Year
  Sex: Female
  Weight: 16 kg

DRUGS (42)
  1. FLUCONAZOLE. [Concomitant]
     Active Substance: FLUCONAZOLE
  2. PARACETAMOL [Concomitant]
     Active Substance: ACETAMINOPHEN
  3. METHOTREXATE. [Suspect]
     Active Substance: METHOTREXATE
     Indication: ACUTE LYMPHOCYTIC LEUKAEMIA
     Dosage: 3.4 MG
     Route: 042
  4. CICLOSPORIN [Concomitant]
     Active Substance: CYCLOSPORINE
  5. DIPHENHYDRAMINE. [Concomitant]
     Active Substance: DIPHENHYDRAMINE
  6. MAGNESIUM [Concomitant]
     Active Substance: MAGNESIUM
  7. PIPERACILLIN. [Concomitant]
     Active Substance: PIPERACILLIN SODIUM
  8. RITUXAN [Suspect]
     Active Substance: RITUXIMAB
     Indication: ACUTE LYMPHOCYTIC LEUKAEMIA
     Dosage: 255 MG
     Route: 042
  9. CHLORHEXIDINE [Concomitant]
     Active Substance: CHLORHEXIDINE
  10. HEPARIN CALCIUM [Concomitant]
     Active Substance: HEPARIN CALCIUM
  11. TRANEXAMIC ACID. [Concomitant]
     Active Substance: TRANEXAMIC ACID
  12. VITAMIN D [Concomitant]
     Active Substance: VITAMIN D NOS
  13. BUSULFAN. [Suspect]
     Active Substance: BUSULFAN
     Indication: ACUTE LYMPHOCYTIC LEUKAEMIA
     Dosage: 90 MG
     Route: 042
  14. AMLODIPINE [Concomitant]
     Active Substance: AMLODIPINE BESYLATE
  15. BUSULFAN. [Suspect]
     Active Substance: BUSULFAN
     Indication: ACUTE LYMPHOCYTIC LEUKAEMIA
     Dosage: 77 MG
     Route: 042
  16. CLOTRIMAZOLE. [Concomitant]
     Active Substance: CLOTRIMAZOLE
  17. DEXAMETHASONE. [Concomitant]
     Active Substance: DEXAMETHASONE
     Route: 014
  18. DIMENHYDRINATE. [Concomitant]
     Active Substance: DIMENHYDRINATE
     Route: 042
  19. FAMCICLOVIR. [Concomitant]
     Active Substance: FAMCICLOVIR
  20. LORAZEPAM. [Concomitant]
     Active Substance: LORAZEPAM
  21. ONDANSETRON [Concomitant]
     Active Substance: ONDANSETRON
  22. PREDNISONE. [Concomitant]
     Active Substance: PREDNISONE
  23. RANITIDINE. [Concomitant]
     Active Substance: RANITIDINE
  24. BUSULFAN. [Suspect]
     Active Substance: BUSULFAN
     Indication: ACUTE LYMPHOCYTIC LEUKAEMIA
     Dosage: 70 MG
     Route: 042
  25. BETAMETHASONE. [Concomitant]
     Active Substance: BETAMETHASONE
  26. THIOTEPA. [Suspect]
     Active Substance: THIOTEPA
     Indication: ACUTE LYMPHOCYTIC LEUKAEMIA
     Dosage: 80 MG
     Route: 042
  27. CEFTAZIDIME. [Concomitant]
     Active Substance: CEFTAZIDIME
  28. LEVETIRACETAM. [Concomitant]
     Active Substance: LEVETIRACETAM
  29. METOCLOPRAMIDE. [Concomitant]
     Active Substance: METOCLOPRAMIDE
  30. MORPHINE SULFATE. [Concomitant]
     Active Substance: MORPHINE SULFATE
  31. NIFEDIPINE. [Concomitant]
     Active Substance: NIFEDIPINE
  32. COTRIMOXAZOLE [Concomitant]
     Active Substance: SULFAMETHOXAZOLE\TRIMETHOPRIM
  33. CALCIUM [Concomitant]
     Active Substance: CALCIUM
  34. BUSULFAN. [Suspect]
     Active Substance: BUSULFAN
     Indication: ACUTE LYMPHOCYTIC LEUKAEMIA
     Dosage: 77 MG
     Route: 042
  35. FLUDARABINE [Suspect]
     Active Substance: FLUDARABINE PHOSPHATE
     Indication: ACUTE LYMPHOCYTIC LEUKAEMIA
     Dosage: 20 MG
     Route: 042
  36. TOBRAMYCIN. [Concomitant]
     Active Substance: TOBRAMYCIN
  37. VANCOMYCIN [Concomitant]
     Active Substance: VANCOMYCIN
  38. TAZOBACTAM [Concomitant]
     Active Substance: TAZOBACTAM
  39. RITUXAN [Suspect]
     Active Substance: RITUXIMAB
     Indication: ACUTE LYMPHOCYTIC LEUKAEMIA
     Dosage: 250 MG
     Route: 042
  40. EPINEPHRINE. [Concomitant]
     Active Substance: EPINEPHRINE
     Route: 030
  41. FUROSEMIDE. [Concomitant]
     Active Substance: FUROSEMIDE
  42. ALTEPLASE. [Concomitant]
     Active Substance: ALTEPLASE
     Route: 042

REACTIONS (3)
  - Bacteraemia [Unknown]
  - Aplastic anaemia [Unknown]
  - Epstein-Barr virus infection [Unknown]
